FAERS Safety Report 21806636 (Version 1)
Quarter: 2023Q1

REPORT INFORMATION
  Report Type: Spontaneous
  Country: IT (occurrence: IT)
  Receive Date: 20230102
  Receipt Date: 20230102
  Transmission Date: 20230417
  Serious: Yes (Other)
  Sender: FDA-Public Use
  Company Number: IT-002147023-NVSC2022IT299960

PATIENT
  Age: 5 Year
  Sex: Male

DRUGS (2)
  1. DICLOFENAC [Suspect]
     Active Substance: DICLOFENAC
     Indication: Cytokine release syndrome
     Dosage: 0.5 MG/KG, QD (CONTINUOUS INFUSION)
     Route: 042
  2. DICLOFENAC [Suspect]
     Active Substance: DICLOFENAC
     Dosage: 1 MG/KG, QD (CONTINUOUS INFUSION)
     Route: 042

REACTIONS (3)
  - Cytokine release syndrome [Unknown]
  - Disease progression [Unknown]
  - Product use in unapproved indication [Unknown]
